FAERS Safety Report 14535011 (Version 1)
Quarter: 2018Q1

REPORT INFORMATION
  Report Type: Other
  Country: US (occurrence: US)
  Receive Date: 20180215
  Receipt Date: 20180215
  Transmission Date: 20180509
  Serious: Yes (Hospitalization)
  Sender: FDA-Public Use
  Company Number: US-LIL^ DRUG STORE-2042020

PATIENT
  Age: 12 Month
  Sex: Female
  Weight: 10.46 kg

DRUGS (1)
  1. LIL DRUG STORE IBUPROFEN [Suspect]
     Active Substance: IBUPROFEN
     Indication: ACCIDENTAL EXPOSURE TO PRODUCT
     Route: 048

REACTIONS (3)
  - Failure of child resistant mechanism for pharmaceutical product [None]
  - Accidental exposure to product by child [None]
  - Accidental exposure to product [Recovered/Resolved]
